FAERS Safety Report 8791264 (Version 1)
Quarter: 2012Q4

REPORT INFORMATION
  Report Type: Spontaneous
  Country: FR (occurrence: None)
  Receive Date: 20120911
  Receipt Date: 20120911
  Transmission Date: 20130627
  Serious: Yes (Other)
  Sender: FDA-Public Use
  Company Number: ABR_00619_2012

PATIENT
  Age: 53 Year
  Sex: Male

DRUGS (5)
  1. ERYTHROCINE [Suspect]
     Indication: GASTROINTESTINAL MOTILITY DISORDER
     Route: 042
     Dates: start: 20120703, end: 20120706
  2. INEXIUM [Concomitant]
  3. VITAMIN B1 [Concomitant]
  4. IMOVANE [Concomitant]
  5. OLICLINOMEL [Concomitant]

REACTIONS (4)
  - Cholestasis [None]
  - Gamma-glutamyltransferase increased [None]
  - Alanine aminotransferase increased [None]
  - Blood alkaline phosphatase increased [None]
